FAERS Safety Report 8105748-3 (Version None)
Quarter: 2012Q1

REPORT INFORMATION
  Report Type: 
  Country: None (occurrence: None)
  Receive Date: 20120201
  Receipt Date: 20120126
  Transmission Date: 20120608
  Serious: Yes (Other)
  Sender: FDA-Public Use
  Company Number: US-AMGEN-USASP2012005634

PATIENT
  Sex: Male

DRUGS (3)
  1. ENBREL [Suspect]
     Indication: PRODUCT USED FOR UNKNOWN INDICATION
     Dosage: 25 MG, UNK
  2. ENBREL [Suspect]
     Dosage: 50 MG, UNK
  3. HUMIRA [Concomitant]
     Dosage: UNK

REACTIONS (4)
  - PARANOIA [None]
  - DRUG INEFFECTIVE [None]
  - DEPRESSION [None]
  - MALAISE [None]
